FAERS Safety Report 10974613 (Version 2)
Quarter: 2015Q4

REPORT INFORMATION
  Report Type: Spontaneous
  Country: US (occurrence: US)
  Receive Date: 20150401
  Receipt Date: 20151110
  Transmission Date: 20160304
  Serious: No
  Sender: FDA-Public Use
  Company Number: US-ASTRAZENECA-2014SE57105

PATIENT
  Age: 51 Year
  Sex: Male
  Weight: 91.6 kg

DRUGS (14)
  1. MONTELUKAST [Concomitant]
     Active Substance: MONTELUKAST SODIUM
  2. BYDUREON [Suspect]
     Active Substance: EXENATIDE
     Indication: TYPE 2 DIABETES MELLITUS
     Route: 058
     Dates: start: 2014
  3. LOSARTAN. [Concomitant]
     Active Substance: LOSARTAN
  4. METOPROLOL [Suspect]
     Active Substance: METOPROLOL
     Indication: HEART RATE IRREGULAR
     Route: 048
  5. FENOFIBRATE. [Concomitant]
     Active Substance: FENOFIBRATE
  6. POTASSIUM [Concomitant]
     Active Substance: POTASSIUM
  7. BYETTA [Suspect]
     Active Substance: EXENATIDE
     Indication: TYPE 2 DIABETES MELLITUS
     Route: 058
     Dates: end: 201503
  8. BYETTA [Suspect]
     Active Substance: EXENATIDE
     Indication: TYPE 2 DIABETES MELLITUS
     Route: 058
     Dates: start: 201503
  9. LOVASTATIN. [Concomitant]
     Active Substance: LOVASTATIN
  10. SUDAFED [Concomitant]
     Active Substance: PSEUDOEPHEDRINE HYDROCHLORIDE
     Indication: HYPERSENSITIVITY
  11. VITAMINS [Concomitant]
     Active Substance: VITAMINS
  12. GLIMEPIRIDE. [Concomitant]
     Active Substance: GLIMEPIRIDE
  13. VALSARTAN. [Concomitant]
     Active Substance: VALSARTAN
     Dosage: 160/12.5
  14. HCTZ [Concomitant]
     Active Substance: HYDROCHLOROTHIAZIDE

REACTIONS (8)
  - Weight decreased [Unknown]
  - Incision site vesicles [Recovering/Resolving]
  - Injection site nodule [Recovering/Resolving]
  - Underdose [Unknown]
  - Product quality issue [Unknown]
  - Intentional product misuse [Not Recovered/Not Resolved]
  - Injection site pruritus [Recovering/Resolving]
  - Drug hypersensitivity [Recovered/Resolved]

NARRATIVE: CASE EVENT DATE: 2014
